FAERS Safety Report 20059198 (Version 1)
Quarter: 2021Q4

REPORT INFORMATION
  Report Type: Spontaneous
  Country: IN (occurrence: IN)
  Receive Date: 20211111
  Receipt Date: 20211111
  Transmission Date: 20220303
  Serious: Yes (Other)
  Sender: FDA-Public Use
  Company Number: IN-LUPIN PHARMACEUTICALS INC.-2021-22018

PATIENT
  Age: 6 Year
  Sex: Female

DRUGS (3)
  1. RIFAMPIN [Suspect]
     Active Substance: RIFAMPIN
     Indication: Tuberculosis
     Dosage: UNK
     Route: 065
  2. DEXAMETHASONE [Concomitant]
     Active Substance: DEXAMETHASONE
     Indication: B precursor type acute leukaemia
     Dosage: 10 UNK, QD
     Route: 065
  3. ASPARAGINASE [Concomitant]
     Active Substance: ASPARAGINASE
     Indication: B precursor type acute leukaemia
     Dosage: UNK (10,000 U/M^2)
     Route: 065

REACTIONS (1)
  - Thoracic cavity drainage test abnormal [Unknown]
